FAERS Safety Report 4595981-X (Version None)
Quarter: 2005Q1

REPORT INFORMATION
  Report Type: 
  Country: None (occurrence: None)
  Receive Date: 20050224
  Receipt Date: 20050208
  Transmission Date: 20050727
  Serious: Yes (Death)
  Sender: FDA-Public Use
  Company Number: AU_050208367

PATIENT
  Age: 72 Year
  Sex: Female

DRUGS (10)
  1. XIGRIS [Suspect]
     Indication: SEPSIS
     Dosage: 24 UG/KG/HR
     Dates: start: 20041221
  2. HYDROCORTISONE [Concomitant]
  3. NORADRENALINE [Concomitant]
  4. MEROPENEM [Concomitant]
  5. GENTAMICIN [Concomitant]
  6. FRUSEMIDE [Concomitant]
  7. DOBUTAMINE HCL [Concomitant]
  8. MORPHINE [Concomitant]
  9. CALCIUM GLUCONATE [Concomitant]
  10. MAGNESIUM [Concomitant]

REACTIONS (1)
  - DEATH [None]
